FAERS Safety Report 11189210 (Version 1)
Quarter: 2015Q2

REPORT INFORMATION
  Report Type: Spontaneous
  Country: IN (occurrence: None)
  Receive Date: 20150611
  Receipt Date: 20150611
  Transmission Date: 20150821
  Serious: Yes (Hospitalization, Other)
  Sender: FDA-Public Use
  Company Number: IN2015GSK078456

PATIENT
  Age: 34 Year
  Sex: Male

DRUGS (3)
  1. NEVIRAPINE (NEVIRAPINE) [Suspect]
     Active Substance: NEVIRAPINE
     Indication: HIV INFECTION
  2. ZIDOVUDINE (ZIDOVUDINE) UNKNOWN) [Suspect]
     Active Substance: ZIDOVUDINE
     Indication: HIV INFECTION
  3. LAMIVUDINE (LAMIVUDINE) UNKNOWN [Suspect]
     Active Substance: LAMIVUDINE
     Indication: HIV INFECTION

REACTIONS (9)
  - Meningeal disorder [None]
  - Meningitis cryptococcal [None]
  - Headache [None]
  - Vomiting [None]
  - Blindness [None]
  - Pyrexia [None]
  - Amnesia [None]
  - Vision blurred [None]
  - Immune reconstitution inflammatory syndrome [None]
